FAERS Safety Report 9329293 (Version 1)
Quarter: 2013Q2

REPORT INFORMATION
  Report Type: Spontaneous
  Country: US (occurrence: US)
  Receive Date: 20130604
  Receipt Date: 20130604
  Transmission Date: 20140414
  Serious: No
  Sender: FDA-Public Use
  Company Number: US-SANOFI-AVENTIS-2013SA025543

PATIENT
  Sex: Female

DRUGS (4)
  1. LANTUS SOLOSTAR [Suspect]
     Dosage: 75-90 UNITS
     Route: 051
     Dates: start: 20130306
  2. SOLOSTAR [Suspect]
     Dates: start: 20130306
  3. LANTUS [Suspect]
     Route: 051
  4. NOVOLOG [Suspect]
     Dosage: DOSE:14 UNIT(S)

REACTIONS (3)
  - Inflammation [Unknown]
  - Blood glucose increased [Unknown]
  - Hyperglycaemia [Unknown]
